FAERS Safety Report 20404265 (Version 1)
Quarter: 2022Q1

REPORT INFORMATION
  Report Type: Report from Study
  Country: US (occurrence: US)
  Receive Date: 20220131
  Receipt Date: 20220131
  Transmission Date: 20220423
  Serious: Yes (Hospitalization, Other)
  Sender: FDA-Public Use
  Company Number: US-TAKEDA-2022TUS004273

PATIENT
  Age: 59 Year
  Sex: Female
  Weight: 88 kg

DRUGS (6)
  1. VEDOLIZUMAB [Suspect]
     Active Substance: VEDOLIZUMAB
     Indication: Crohn^s disease
     Dosage: 300 MILLIGRAM
     Route: 042
     Dates: start: 201706
  2. LOSARTAN [Concomitant]
     Active Substance: LOSARTAN
     Indication: Blood pressure increased
     Dosage: UNK
  3. AMLODIPINE [Concomitant]
     Active Substance: AMLODIPINE BESYLATE
     Indication: Blood pressure increased
     Dosage: UNK
  4. HYDROQUINONE [Concomitant]
     Active Substance: HYDROQUINONE
     Indication: Arthritis
     Dosage: UNK
  5. MELOXICAM [Concomitant]
     Active Substance: MELOXICAM
     Indication: Arthritis
     Dosage: UNK
  6. METAXALONE [Concomitant]
     Active Substance: METAXALONE
     Indication: Muscle relaxant therapy
     Dosage: UNK

REACTIONS (11)
  - Myocardial infarction [Unknown]
  - Arrhythmia [Unknown]
  - Ulcer haemorrhage [Unknown]
  - Foot fracture [Unknown]
  - Dizziness [Unknown]
  - Osteopenia [Unknown]
  - Nasopharyngitis [Unknown]
  - Back pain [Unknown]
  - Anxiety [Unknown]
  - Muscle twitching [Unknown]
  - Fall [Unknown]

NARRATIVE: CASE EVENT DATE: 20180801
